FAERS Safety Report 21122833 (Version 2)
Quarter: 2022Q3

REPORT INFORMATION
  Report Type: Spontaneous
  Country: AT (occurrence: AT)
  Receive Date: 20220723
  Receipt Date: 20220803
  Transmission Date: 20221027
  Serious: Yes (Other)
  Sender: FDA-Public Use
  Company Number: AT-NOVARTISPH-NVSC2022AT100582

PATIENT
  Sex: Female

DRUGS (6)
  1. COSENTYX [Suspect]
     Active Substance: SECUKINUMAB
     Indication: Psoriatic arthropathy
     Dosage: UNK (DOSAGE IS UNKNOWN, POSSIBLY 300MG)
     Route: 065
  2. COSENTYX [Suspect]
     Active Substance: SECUKINUMAB
     Dosage: 300 MG
     Route: 065
     Dates: start: 202112
  3. COSENTYX [Suspect]
     Active Substance: SECUKINUMAB
     Dosage: UNK (2ND DOSE )
     Route: 065
     Dates: start: 20220103
  4. COSENTYX [Suspect]
     Active Substance: SECUKINUMAB
     Dosage: UNK (3RD DOSE )
     Route: 065
     Dates: start: 20220110
  5. COSENTYX [Suspect]
     Active Substance: SECUKINUMAB
     Dosage: UNK (4TH DOSE )
     Route: 065
     Dates: start: 20220116
  6. COSENTYX [Suspect]
     Active Substance: SECUKINUMAB
     Dosage: 150 MG
     Route: 065
     Dates: start: 202203

REACTIONS (8)
  - Angioedema [Recovered/Resolved]
  - Swelling [Unknown]
  - Oedema [Unknown]
  - Arthralgia [Unknown]
  - Skin lesion [Unknown]
  - Swelling face [Unknown]
  - Joint swelling [Unknown]
  - Inappropriate schedule of product administration [Unknown]

NARRATIVE: CASE EVENT DATE: 20211201
